FAERS Safety Report 11807401 (Version 1)
Quarter: 2015Q4

REPORT INFORMATION
  Report Type: Spontaneous
  Country: US (occurrence: US)
  Receive Date: 20151207
  Receipt Date: 20151207
  Transmission Date: 20160305
  Serious: No
  Sender: FDA-Public Use
  Company Number: US-BAUSCH-BL-2015-016077

PATIENT
  Age: 44 Year
  Sex: Male

DRUGS (1)
  1. TOBRAMYCIN AND DEXAMETHASONE [Suspect]
     Active Substance: DEXAMETHASONE\TOBRAMYCIN
     Indication: EYE INFECTION BACTERIAL
     Dosage: 1-2 DROPS IN THE LEFT EYE EVERY 1-2 HOURS FOR THE FIRST DAY THEN AFTER THAT EVERY 4 HOURS.
     Route: 047
     Dates: start: 20150601, end: 201506

REACTIONS (1)
  - Ocular hyperaemia [Not Recovered/Not Resolved]

NARRATIVE: CASE EVENT DATE: 201506
